FAERS Safety Report 8963886 (Version 3)
Quarter: 2013Q1

REPORT INFORMATION
  Report Type: Spontaneous
  Country: US (occurrence: US)
  Receive Date: 20121214
  Receipt Date: 20130117
  Transmission Date: 20140127
  Serious: No
  Sender: FDA-Public Use
  Company Number: US-009507513-1212USA002568

PATIENT
  Sex: Male

DRUGS (1)
  1. PROVENTIL [Suspect]
     Dosage: UNK, PRN
     Route: 055

REACTIONS (3)
  - Drug dose omission [Unknown]
  - Device malfunction [Unknown]
  - Product quality issue [Unknown]
